FAERS Safety Report 7217683-3 (Version None)
Quarter: 2011Q1

REPORT INFORMATION
  Report Type: 
  Country: None (occurrence: None)
  Receive Date: 20110110
  Receipt Date: 20101217
  Transmission Date: 20110831
  Serious: Yes (Other)
  Sender: FDA-Public Use
  Company Number: IT-ROCHE-751844

PATIENT
  Age: 67 Year
  Sex: Female

DRUGS (2)
  1. PEGINTERFERON ALFA-2A [Suspect]
     Indication: HEPATITIS C
     Route: 058
  2. RIBAVARIN [Suspect]
     Indication: HEPATITIS C
     Dosage: WEIGHT BASED
     Route: 048

REACTIONS (1)
  - CARDIAC FAILURE [None]
